FAERS Safety Report 24644287 (Version 2)
Quarter: 2024Q4

REPORT INFORMATION
  Report Type: Report from Study
  Country: IT (occurrence: IT)
  Receive Date: 20241120
  Receipt Date: 20241220
  Transmission Date: 20250115
  Serious: No
  Sender: EMD SERONO INC
  Company Number: IT-Merck Healthcare KGaA-2024058956

PATIENT
  Age: 31 Year
  Sex: Female
  Weight: 55 kg

DRUGS (2)
  1. CLADRIBINE [Suspect]
     Active Substance: CLADRIBINE
     Indication: Relapsing multiple sclerosis
     Dosage: YEAR ONE WEEK ONE THERAPY
     Dates: start: 20231020, end: 20231024
  2. CLADRIBINE [Suspect]
     Active Substance: CLADRIBINE
     Dosage: YEAR ONE WEEK TWO THERAPY
     Dates: start: 20231120, end: 20231124

REACTIONS (1)
  - Pneumonia [Recovered/Resolved]

NARRATIVE: CASE EVENT DATE: 20240924
